FAERS Safety Report 11363865 (Version 2)
Quarter: 2015Q3

REPORT INFORMATION
  Report Type: Spontaneous
  Country: JP (occurrence: JP)
  Receive Date: 20150811
  Receipt Date: 20150908
  Transmission Date: 20151125
  Serious: Yes (Other)
  Sender: FDA-Public Use
  Company Number: JP-ROCHE-1606116

PATIENT
  Age: 38 Year
  Sex: Female

DRUGS (1)
  1. ACTIVACIN [Suspect]
     Active Substance: ALTEPLASE
     Indication: CEREBRAL ARTERY OCCLUSION
     Route: 042

REACTIONS (1)
  - Ruptured cerebral aneurysm [Recovered/Resolved]
